FAERS Safety Report 11912361 (Version 1)
Quarter: 2016Q1

REPORT INFORMATION
  Report Type: Spontaneous
  Country: DE (occurrence: DE)
  Receive Date: 20160113
  Receipt Date: 20160113
  Transmission Date: 20160526
  Serious: Yes (Other)
  Sender: FDA-Public Use
  Company Number: DE-ALEXION PHARMACEUTICALS INC-A201504989

PATIENT
  Age: 67 Year
  Sex: Female

DRUGS (2)
  1. SOLIRIS [Suspect]
     Active Substance: ECULIZUMAB
     Dosage: 900 MG, Q2W
     Route: 042
     Dates: end: 20151126
  2. SOLIRIS [Suspect]
     Active Substance: ECULIZUMAB
     Indication: PAROXYSMAL NOCTURNAL HAEMOGLOBINURIA
     Dosage: 600 MG, 4 TIMES
     Route: 042
     Dates: start: 20130619

REACTIONS (3)
  - Psoriasis [Unknown]
  - Eczema [Not Recovered/Not Resolved]
  - Squamous cell carcinoma of skin [Unknown]

NARRATIVE: CASE EVENT DATE: 20140912
